FAERS Safety Report 19511560 (Version 3)
Quarter: 2022Q3

REPORT INFORMATION
  Report Type: Spontaneous
  Country: JP (occurrence: JP)
  Receive Date: 20210709
  Receipt Date: 20220712
  Transmission Date: 20221026
  Serious: Yes (Life-Threatening, Hospitalization, Other)
  Sender: FDA-Public Use
  Company Number: JP-BRISTOL-MYERS SQUIBB COMPANY-BMS-2021-066108

PATIENT
  Age: 57 Year
  Sex: Male
  Weight: 70 kg

DRUGS (3)
  1. OPDIVO [Suspect]
     Active Substance: NIVOLUMAB
     Indication: Malignant melanoma
     Dosage: 240 MILLIGRAM, Q2WK
     Route: 041
     Dates: start: 20190426, end: 20191129
  2. OPDIVO [Suspect]
     Active Substance: NIVOLUMAB
     Dosage: 240 MILLIGRAM
     Route: 041
     Dates: start: 20200124, end: 20201023
  3. OPDIVO [Suspect]
     Active Substance: NIVOLUMAB
     Dosage: 480 MILLIGRAM
     Route: 041
     Dates: start: 20201120, end: 20210219

REACTIONS (3)
  - Angiocentric lymphoma [Recovering/Resolving]
  - Interstitial lung disease [Recovered/Resolved]
  - T-cell lymphoma [Recovering/Resolving]

NARRATIVE: CASE EVENT DATE: 20191129
